FAERS Safety Report 4875589-9 (Version None)
Quarter: 2006Q1

REPORT INFORMATION
  Report Type: 
  Country: None (occurrence: None)
  Receive Date: 20060109
  Receipt Date: 20060103
  Transmission Date: 20060701
  Serious: Yes (Hospitalization)
  Sender: FDA-Public Use
  Company Number: IT-ROCHE-430343

PATIENT
  Age: 84 Year
  Sex: Female

DRUGS (1)
  1. ROCEPHIN [Suspect]
     Indication: ERYSIPELAS
     Route: 042
     Dates: start: 20051005, end: 20051005

REACTIONS (1)
  - ASTHMA [None]
